FAERS Safety Report 21565491 (Version 1)
Quarter: 2022Q4

REPORT INFORMATION
  Report Type: Spontaneous
  Country: US (occurrence: US)
  Receive Date: 20221108
  Receipt Date: 20221108
  Transmission Date: 20230113
  Serious: No
  Sender: FDA-Public Use
  Company Number: US-ELI_LILLY_AND_COMPANY-US202211002817

PATIENT
  Sex: Female

DRUGS (2)
  1. EMGALITY [Suspect]
     Active Substance: GALCANEZUMAB-GNLM
     Indication: Product used for unknown indication
     Dosage: 120 MG, UNKNOWN
     Route: 065
  2. BETASERON [Concomitant]
     Active Substance: INTERFERON BETA-1B
     Indication: Multiple sclerosis

REACTIONS (3)
  - Injection site erythema [Unknown]
  - Injection site warmth [Unknown]
  - Injection site induration [Unknown]
